FAERS Safety Report 4934946-2 (Version None)
Quarter: 2006Q1

REPORT INFORMATION
  Report Type: 
  Country: None (occurrence: None)
  Receive Date: 20060306
  Receipt Date: 20060306
  Transmission Date: 20060701
  Serious: Yes (Death)
  Sender: FDA-Public Use
  Company Number: None

PATIENT
  Sex: Male
  Weight: 63.9572 kg

DRUGS (13)
  1. VFEND [Suspect]
     Indication: PNEUMONIA ASPERGILLUS
     Dosage: 250 MG Q 12 HOURS IV DRIP
     Route: 041
     Dates: start: 20060210, end: 20060213
  2. VFEND [Suspect]
     Indication: PNEUMONIA ASPERGILLUS
     Dosage: 200MG Q 12 HOURS PO
     Route: 048
     Dates: start: 20060213, end: 20060217
  3. LEVOFLOXACIN [Concomitant]
  4. SULFAMETHOXAZOLE + TRIMETHOPRIM [Concomitant]
  5. IMIPENEM/CILASTATIN [Concomitant]
  6. PHYTONADIONE [Concomitant]
  7. MORPHINE [Concomitant]
  8. LORAZEPAM [Concomitant]
  9. ZOLPIDEM [Concomitant]
  10. DEXAMETHASONE [Concomitant]
  11. DUONEB [Concomitant]
  12. ATENOLOL [Concomitant]
  13. AMLODEPINE [Concomitant]

REACTIONS (1)
  - RENAL FAILURE ACUTE [None]
